FAERS Safety Report 4533002-5 (Version None)
Quarter: 2004Q4

REPORT INFORMATION
  Report Type: 
  Country: None (occurrence: None)
  Receive Date: 20041210
  Receipt Date: 20040914
  Transmission Date: 20050328
  Serious: No
  Sender: FDA-Public Use
  Company Number: 2004-00522

PATIENT
  Age: 51 Year
  Sex: Female
  Weight: 105.7 kg

DRUGS (11)
  1. VELCADE [Suspect]
     Indication: MULTIPLE MYELOMA
     Dosage: 2.80 MG, IV BOLUS
     Route: 040
     Dates: start: 20030630
  2. LEXAPRO [Concomitant]
  3. LOTENSIN [Concomitant]
  4. SODIUM BICARBONATE [Concomitant]
  5. CALCIUM WITH VITAMIN D (ERGOCALCIFEROL, CALCIUM SODIUM LACTATE, CALCIU [Concomitant]
  6. GLYBURIDE [Concomitant]
  7. NEXIUM [Concomitant]
  8. LEVOXYL [Concomitant]
  9. WARFARIN [Concomitant]
  10. DICYCLOMINE [Concomitant]
  11. ZOMETA [Concomitant]

REACTIONS (1)
  - CHALAZION [None]
